FAERS Safety Report 7978953-4 (Version None)
Quarter: 2011Q4

REPORT INFORMATION
  Report Type: 
  Country: None (occurrence: None)
  Receive Date: 20111214
  Receipt Date: 20111205
  Transmission Date: 20120403
  Serious: Yes (Life-Threatening, Hospitalization)
  Sender: FDA-Public Use
  Company Number: FR-PFIZER INC-K201100634

PATIENT
  Age: 71 Year
  Sex: Male

DRUGS (11)
  1. ACUPAN [Concomitant]
     Dosage: UNK
     Dates: start: 20110511
  2. THIOCOLCHICOSIDE [Concomitant]
     Dosage: UNK
     Dates: start: 20110511
  3. RAMIPRIL [Suspect]
     Dosage: 5 MG, 1X/DAY
     Route: 048
     Dates: end: 20110514
  4. METFORMIN HCL [Suspect]
     Dosage: UNK
     Dates: end: 20110514
  5. STABLON [Concomitant]
     Dosage: UNK
  6. FUROSEMIDE [Suspect]
     Dosage: 20 MG, 2X/DAY
     Route: 048
     Dates: end: 20100514
  7. JANUVIA [Concomitant]
     Dosage: UNK
  8. ASPIRIN [Concomitant]
     Dosage: UNK
  9. VOLTAREN [Suspect]
     Dosage: 100 MG, 2X/DAY
     Route: 048
     Dates: start: 20110511, end: 20110514
  10. SIMVASTATIN [Concomitant]
     Dosage: UNK
  11. TRAMADOL HCL [Concomitant]
     Dosage: UNK
     Dates: start: 20110511

REACTIONS (8)
  - OEDEMA PERIPHERAL [None]
  - ANURIA [None]
  - VOMITING [None]
  - LACTIC ACIDOSIS [None]
  - PAIN IN EXTREMITY [None]
  - RENAL FAILURE ACUTE [None]
  - HYPERKALAEMIA [None]
  - NAUSEA [None]
